FAERS Safety Report 5160584-5 (Version None)
Quarter: 2006Q4

REPORT INFORMATION
  Report Type: 
  Country: None (occurrence: None)
  Receive Date: 20061129
  Receipt Date: 20061006
  Transmission Date: 20070319
  Serious: Yes (Hospitalization)
  Sender: FDA-Public Use
  Company Number: ES-MERCK-0610ESP00017

PATIENT
  Age: 5 Year
  Sex: Female

DRUGS (4)
  1. SINGULAIR [Suspect]
     Indication: BRONCHIAL HYPERREACTIVITY
     Route: 048
     Dates: start: 20050101, end: 20060501
  2. AMOXICILLIN AND CLAVULANATE POTASSIUM [Suspect]
     Indication: INFECTION
     Route: 065
     Dates: start: 20060501, end: 20060501
  3. AMOXICILLIN AND CLAVULANATE POTASSIUM [Suspect]
     Indication: PYREXIA
     Route: 065
     Dates: start: 20060501, end: 20060501
  4. DESLORATADINE [Concomitant]
     Indication: CONJUNCTIVITIS ALLERGIC
     Route: 048
     Dates: start: 20050101, end: 20060501

REACTIONS (1)
  - ERYTHEMA MULTIFORME [None]
